FAERS Safety Report 18504780 (Version 1)
Quarter: 2020Q4

REPORT INFORMATION
  Report Type: Spontaneous
  Country: GR (occurrence: GR)
  Receive Date: 20201115
  Receipt Date: 20201115
  Transmission Date: 20210114
  Serious: Yes (Other)
  Sender: FDA-Public Use
  Company Number: GR-LUPIN PHARMACEUTICALS INC.-2020-08915

PATIENT
  Age: 51 Year
  Sex: Male

DRUGS (9)
  1. HYDROXYCHLOROQUINE [Suspect]
     Active Substance: HYDROXYCHLOROQUINE
     Indication: COVID-19
     Dosage: UNK
     Route: 065
     Dates: start: 202003
  2. MEROPENEM. [Concomitant]
     Active Substance: MEROPENEM
     Indication: COVID-19
     Dosage: UNK
     Route: 065
     Dates: start: 202003
  3. ANAKINRA [Concomitant]
     Active Substance: ANAKINRA
     Indication: COVID-19
     Dosage: 200 MILLIGRAM, UNK
     Route: 042
     Dates: start: 202003
  4. AZITHROMYCIN ANHYDROUS. [Suspect]
     Active Substance: AZITHROMYCIN ANHYDROUS
     Indication: COVID-19
     Dosage: UNK
     Route: 065
     Dates: start: 202003
  5. TEICOPLANIN [Concomitant]
     Active Substance: TEICOPLANIN
     Indication: COVID-19
     Dosage: UNK
     Route: 065
     Dates: start: 202003
  6. NOREPINEPHRINE. [Concomitant]
     Active Substance: NOREPINEPHRINE
     Indication: SHOCK
     Dosage: 0.13 MICROGRAM/KILOGRAM, UNK
     Route: 065
     Dates: start: 202003
  7. ANAKINRA [Concomitant]
     Active Substance: ANAKINRA
     Indication: HAEMOPHAGOCYTIC LYMPHOHISTIOCYTOSIS
  8. HYDROCORTISONE. [Suspect]
     Active Substance: HYDROCORTISONE
     Indication: COVID-19
     Dosage: 50 MILLIGRAM, UNK
     Route: 042
     Dates: start: 202003
  9. NOREPINEPHRINE. [Concomitant]
     Active Substance: NOREPINEPHRINE
     Dosage: 0.08 MICROGRAM/KILOGRAM, UNK (ON DAY 7)
     Route: 065
     Dates: start: 202003

REACTIONS (1)
  - Off label use [Unknown]
